FAERS Safety Report 4978271-2 (Version None)
Quarter: 2006Q2

REPORT INFORMATION
  Report Type: 
  Country: None (occurrence: None)
  Receive Date: 20060417
  Receipt Date: 20060323
  Transmission Date: 20061013
  Serious: Yes (Hospitalization)
  Sender: FDA-Public Use
  Company Number: PCA0583829

PATIENT
  Age: 83 Year
  Sex: Female
  Weight: 68.0396 kg

DRUGS (8)
  1. MINOXIDIL [Suspect]
     Indication: HAIR DISORDER
     Dosage: 1ML/PER LABEL/TOPICAL
     Route: 061
     Dates: start: 20030101, end: 20060201
  2. PROCARDIA [Concomitant]
  3. PRINIVIL [Concomitant]
  4. BUMEX [Concomitant]
  5. SYNTHROID [Concomitant]
  6. ATACAND [Concomitant]
  7. NORVASC [Concomitant]
  8. ASPIRIN [Concomitant]

REACTIONS (5)
  - AORTIC VALVE REPLACEMENT [None]
  - DYSPNOEA [None]
  - HAIR GROWTH ABNORMAL [None]
  - POST PROCEDURAL COMPLICATION [None]
  - TRIPLE VESSEL BYPASS GRAFT [None]
